FAERS Safety Report 11331223 (Version 1)
Quarter: 2015Q3

REPORT INFORMATION
  Report Type: Spontaneous
  Country: US (occurrence: US)
  Receive Date: 20150803
  Receipt Date: 20150803
  Transmission Date: 20151125
  Serious: No
  Sender: FDA-Public Use
  Company Number: US-JNJFOC-20150702032

PATIENT
  Sex: Male

DRUGS (3)
  1. NORVIR [Suspect]
     Active Substance: RITONAVIR
     Indication: HIV INFECTION
     Dosage: ON AND OFF FOR 5 DAYS
  2. MULTIPLE MEDICATIONS, NOS [Concomitant]
     Indication: PRODUCT USED FOR UNKNOWN INDICATION
  3. PREZCOBIX [Suspect]
     Active Substance: COBICISTAT\DARUNAVIR ETHANOLATE
     Indication: HIV INFECTION
     Dosage: 800/150MG
     Route: 048

REACTIONS (1)
  - Drug administration error [Recovered/Resolved]
